FAERS Safety Report 5467730-4 (Version None)
Quarter: 2007Q3

REPORT INFORMATION
  Report Type: 
  Country: None (occurrence: None)
  Receive Date: 20070814
  Receipt Date: 20070502
  Transmission Date: 20080115
  Serious: No
  Sender: FDA-Public Use
  Company Number: 200713292US

PATIENT
  Sex: Male

DRUGS (1)
  1. APIDRA [Suspect]

REACTIONS (1)
  - EYE IRRITATION [None]
